FAERS Safety Report 7526289-8 (Version None)
Quarter: 2011Q2

REPORT INFORMATION
  Report Type: 
  Country: None (occurrence: None)
  Receive Date: 20110606
  Receipt Date: 20110523
  Transmission Date: 20111010
  Serious: Yes (Other)
  Sender: FDA-Public Use
  Company Number: US-BAYER-201042058NA

PATIENT
  Age: 18 Year
  Sex: Female
  Weight: 96 kg

DRUGS (25)
  1. YASMIN [Suspect]
     Indication: CONTRACEPTION
     Route: 048
     Dates: start: 20070402, end: 20080813
  2. DROSPIRENONE AND ETHINYL ESTRADIOL [Suspect]
     Indication: CONTRACEPTION
  3. CLARITHROMYCIN [Concomitant]
     Dosage: UNK UNK, BID
  4. NEURONTIN [Concomitant]
  5. GARAMYCIN [Concomitant]
  6. YAZ [Suspect]
     Indication: CONTRACEPTION
     Dates: start: 20090304, end: 20091230
  7. YAZ [Suspect]
     Indication: ACNE
  8. YAZ [Suspect]
     Indication: PREMENSTRUAL SYNDROME
  9. YASMIN [Suspect]
     Indication: ACNE
  10. DROSPIRENONE AND ETHINYL ESTRADIOL [Suspect]
     Indication: ACNE
     Dosage: UNK UNK, QD
     Route: 048
     Dates: start: 20080813, end: 20090204
  11. LORTAB [Concomitant]
     Dosage: UNK UNK, BID
  12. SCOPOLAMINE [Concomitant]
  13. BENTYL [Concomitant]
     Dosage: UNK UNK, TID
  14. DIFLUCAN [Concomitant]
     Dosage: UNK
     Route: 048
  15. DROSPIRENONE AND ETHINYL ESTRADIOL [Suspect]
     Indication: PREMENSTRUAL SYNDROME
  16. SEPTRA DS [Concomitant]
  17. AMOXICILLIN [Concomitant]
  18. OMEPRAZOLE [Concomitant]
     Dosage: UNK UNK, BID
  19. PAMINE FORTE [Concomitant]
  20. FLEXERIL [Concomitant]
  21. PROMETHAZINE [Concomitant]
     Indication: VOMITING
     Dosage: UNK
     Route: 048
  22. YASMIN [Suspect]
     Indication: PREMENSTRUAL SYNDROME
  23. ATIVAN [Concomitant]
  24. ZOFRAN [Concomitant]
  25. PHENERGAN HCL [Concomitant]

REACTIONS (4)
  - CHOLECYSTITIS [None]
  - CHOLECYSTECTOMY [None]
  - ABDOMINAL PAIN [None]
  - GALLBLADDER DISORDER [None]
